FAERS Safety Report 6048835-6 (Version None)
Quarter: 2009Q1

REPORT INFORMATION
  Report Type: 
  Country: None (occurrence: None)
  Receive Date: 20090123
  Receipt Date: 20090119
  Transmission Date: 20090719
  Serious: Yes (Life-Threatening, Hospitalization)
  Sender: FDA-Public Use
  Company Number: US-JNJFOC-20090104051

PATIENT
  Age: 44 Year
  Sex: Male

DRUGS (1)
  1. DURAGESIC-100 [Suspect]
     Indication: INTENTIONAL DRUG MISUSE
     Route: 048

REACTIONS (6)
  - COGNITIVE DISORDER [None]
  - DRUG ABUSE [None]
  - INTENTIONAL DRUG MISUSE [None]
  - OVERDOSE [None]
  - PYREXIA [None]
  - UNRESPONSIVE TO STIMULI [None]
